FAERS Safety Report 8349062-X (Version None)
Quarter: 2012Q2

REPORT INFORMATION
  Report Type: 
  Country: None (occurrence: None)
  Receive Date: 20120508
  Receipt Date: 20120423
  Transmission Date: 20120825
  Serious: Yes (Life-Threatening, Hospitalization)
  Sender: FDA-Public Use
  Company Number: FK201201228

PATIENT
  Age: 57 Year
  Sex: Male
  Weight: 99 kg

DRUGS (1)
  1. OXALIPLATIN [Suspect]
     Indication: COLON CANCER
     Dosage: 2150 MG, 1 IN 2 WK
     Dates: start: 20090908

REACTIONS (3)
  - ANAPHYLACTIC REACTION [None]
  - CARDIAC FAILURE [None]
  - PULMONARY EMBOLISM [None]
